FAERS Safety Report 4341583-X (Version None)
Quarter: 2004Q2

REPORT INFORMATION
  Report Type: 
  Country: None (occurrence: None)
  Receive Date: 20040415
  Receipt Date: 20040330
  Transmission Date: 20050107
  Serious: Yes (Other)
  Sender: FDA-Public Use
  Company Number: USA040363643

PATIENT
  Age: 84 Year
  Sex: Female

DRUGS (11)
  1. FORTEO [Suspect]
     Dates: start: 20030301
  2. NASVASC (AMLODIPINE BESILATE) [Concomitant]
  3. PERCOCET [Concomitant]
  4. ALPRAZOLAM [Concomitant]
  5. ACTONEL [Concomitant]
  6. PREVACID [Concomitant]
  7. CALCITRIOL [Concomitant]
  8. DURAGESIC [Concomitant]
  9. PENTA-TRIAMTERENE HCTZ [Concomitant]
  10. QUININE SULFATE [Concomitant]
  11. HYDROXYZINE [Concomitant]

REACTIONS (4)
  - ARRHYTHMIA [None]
  - INSOMNIA [None]
  - NAUSEA [None]
  - RETCHING [None]
